FAERS Safety Report 7475529-2 (Version None)
Quarter: 2011Q2

REPORT INFORMATION
  Report Type: 
  Country: None (occurrence: None)
  Receive Date: 20110512
  Receipt Date: 20110509
  Transmission Date: 20111010
  Serious: Yes (Death, Other)
  Sender: FDA-Public Use
  Company Number: PHHY2011NZ00915

PATIENT
  Sex: Female

DRUGS (17)
  1. CLOZARIL [Suspect]
     Indication: BIPOLAR DISORDER
  2. ERYTHROMYCIN [Concomitant]
     Dosage: 400 MG, UNK
  3. HYDROCORTISONE [Concomitant]
  4. COLOXYL [Concomitant]
  5. CLOZARIL [Suspect]
     Indication: SCHIZOPHRENIA
     Route: 048
     Dates: start: 20021022
  6. MORPHINE [Concomitant]
  7. ACETAMINOPHEN [Concomitant]
  8. PREDNISONE [Concomitant]
  9. THYROXIN [Concomitant]
     Dosage: 50 UG, UNK
  10. MICONAZOLE NITRATE [Concomitant]
  11. AQUEOUS CREAM [Concomitant]
  12. SENNA-MINT WAF [Concomitant]
  13. BUSCOPAN [Concomitant]
  14. CLARITHROMYCIN [Concomitant]
     Dosage: 250 MG, BID
  15. MIDAZOLAM [Concomitant]
  16. MAXOLON [Concomitant]
  17. FRUSEMIDE [Concomitant]
     Dosage: 40 MG, UNK

REACTIONS (4)
  - WHITE BLOOD CELL COUNT INCREASED [None]
  - PNEUMONIA [None]
  - CARDIOMEGALY [None]
  - RESPIRATORY FAILURE [None]
